FAERS Safety Report 5307279-2 (Version None)
Quarter: 2007Q2

REPORT INFORMATION
  Report Type: 
  Country: None (occurrence: None)
  Receive Date: 20070425
  Receipt Date: 20070417
  Transmission Date: 20071010
  Serious: Yes (Death, Life-Threatening, Hospitalization, Other)
  Sender: FDA-Public Use
  Company Number: JP-BRISTOL-MYERS SQUIBB COMPANY-13667787

PATIENT
  Age: 65 Year
  Sex: Female

DRUGS (11)
  1. ENDOXAN [Suspect]
     Indication: BREAST CANCER METASTATIC
     Route: 042
     Dates: start: 20061201, end: 20061201
  2. FLUOROURACIL [Suspect]
     Indication: BREAST CANCER METASTATIC
     Route: 042
     Dates: start: 20061201, end: 20061201
  3. FARMORUBICIN [Suspect]
     Indication: BREAST CANCER METASTATIC
     Route: 042
     Dates: start: 20061201, end: 20061201
  4. ZOMETA [Concomitant]
     Indication: METASTASES TO BONE
     Route: 042
     Dates: start: 20060609, end: 20061201
  5. LANIRAPID [Concomitant]
     Dates: start: 20061218, end: 20070120
  6. TAKEPRON [Concomitant]
     Dates: start: 20050105, end: 20070106
  7. GASCON [Concomitant]
     Dates: start: 20050422, end: 20070106
  8. MAGNESIUM OXIDE [Concomitant]
     Dates: start: 20050121, end: 20070106
  9. LENDORMIN [Concomitant]
     Dates: start: 20060105, end: 20070106
  10. MEVALOTIN [Concomitant]
     Dates: start: 20050105, end: 20070106
  11. HYSRON [Concomitant]
     Dates: start: 20060512, end: 20070106

REACTIONS (20)
  - ACIDOSIS [None]
  - ANURIA [None]
  - BLOOD CREATININE INCREASED [None]
  - BLOOD PRESSURE DECREASED [None]
  - BLOOD UREA INCREASED [None]
  - BREAST CANCER METASTATIC [None]
  - CARDIAC FAILURE [None]
  - CARDIOMEGALY [None]
  - CONDITION AGGRAVATED [None]
  - HAEMOGLOBIN DECREASED [None]
  - HEPATIC FAILURE [None]
  - METABOLIC ACIDOSIS [None]
  - METASTASES TO LIVER [None]
  - MITRAL VALVE INCOMPETENCE [None]
  - PLATELET COUNT DECREASED [None]
  - PLEURAL EFFUSION [None]
  - RESPIRATORY DISTRESS [None]
  - TRICUSPID VALVE INCOMPETENCE [None]
  - UPPER RESPIRATORY TRACT INFLAMMATION [None]
  - WHEEZING [None]
